FAERS Safety Report 19237365 (Version 1)
Quarter: 2021Q2

REPORT INFORMATION
  Report Type: Spontaneous
  Country: PT (occurrence: PT)
  Receive Date: 20210510
  Receipt Date: 20210510
  Transmission Date: 20210717
  Serious: Yes (Hospitalization, Other)
  Sender: FDA-Public Use
  Company Number: PT-AUROBINDO-AUR-APL-2019-044021

PATIENT
  Age: 61 Year
  Sex: Female

DRUGS (17)
  1. ZOLEDRONIC ACID SOLUTION FOR INFUSION [Suspect]
     Active Substance: ZOLEDRONIC ACID
     Dosage: 5 MICROGRAM/KILOGRAM, 3 WEEK
     Route: 042
     Dates: start: 20190221
  2. CAPTOPRIL. [Concomitant]
     Active Substance: CAPTOPRIL
     Indication: PRODUCT USED FOR UNKNOWN INDICATION
     Dosage: UNK
     Route: 065
     Dates: start: 20180313
  3. TAZOBACTAM [Concomitant]
     Active Substance: TAZOBACTAM
     Indication: LARGE INTESTINE INFECTION
     Dosage: UNK
     Route: 065
  4. PERTUZUMAB. [Suspect]
     Active Substance: PERTUZUMAB
     Indication: BREAST CANCER
     Dosage: 420 MICROGRAM, 3 WEEK
     Route: 042
     Dates: start: 20170213, end: 20170323
  5. DOCETAXEL. [Suspect]
     Active Substance: DOCETAXEL
     Indication: BREAST CANCER
     Dosage: 75 MICROGRAM/SQ. METER, 3 WEEK (MOST RECENT DOSE PRIOR TO THE EVENT: 23/MAR/2017 AND 04/MAY/2017)
     Route: 042
     Dates: start: 20170120
  6. ZOLEDRONIC ACID SOLUTION FOR INFUSION [Suspect]
     Active Substance: ZOLEDRONIC ACID
     Indication: BREAST CANCER
     Dosage: 5 MICROGRAM/KILOGRAM, 3 WEEK
     Route: 042
     Dates: start: 20180830, end: 20190116
  7. TRASTUZUMAB. [Suspect]
     Active Substance: TRASTUZUMAB
     Dosage: 6 MICROGRAM/KILOGRAM, 3 WEEK
     Route: 042
     Dates: start: 20180221, end: 20181218
  8. DIAZEPAM. [Concomitant]
     Active Substance: DIAZEPAM
     Indication: PRODUCT USED FOR UNKNOWN INDICATION
     Dosage: UNK
     Route: 065
     Dates: start: 20180319
  9. TRASTUZUMAB. [Suspect]
     Active Substance: TRASTUZUMAB
     Dosage: 6 MICROGRAM/KILOGRAM, 3 WEEK
     Route: 042
     Dates: start: 20190116
  10. PERTUZUMAB. [Suspect]
     Active Substance: PERTUZUMAB
     Dosage: 420 MICROGRAM, 3 WEEK (MOST RECENT DOSE PRIOR TO EVENT ON 04/MAY/2017)
     Route: 042
     Dates: start: 20170504, end: 20170731
  11. TRASTUZUMAB. [Suspect]
     Active Substance: TRASTUZUMAB
     Dosage: 6 MICROGRAM/KILOGRAM, 3 WEEK
     Route: 042
     Dates: start: 20170504, end: 20170830
  12. TRASTUZUMAB. [Suspect]
     Active Substance: TRASTUZUMAB
     Dosage: 6 MICROGRAM/KILOGRAM, 3 WEEK
     Route: 042
     Dates: start: 20171010, end: 20180102
  13. PIPERACILLIN. [Concomitant]
     Active Substance: PIPERACILLIN SODIUM
     Indication: LARGE INTESTINE INFECTION
     Dosage: UNK
     Route: 065
  14. DEPAKINE [Concomitant]
     Active Substance: VALPROATE SODIUM
     Indication: PRODUCT USED FOR UNKNOWN INDICATION
     Dosage: UNK
     Route: 065
     Dates: start: 20180319
  15. TRASTUZUMAB. [Suspect]
     Active Substance: TRASTUZUMAB
     Indication: BREAST CANCER
     Dosage: 6 MICROGRAM/KILOGRAM, 3 WEEK
     Route: 042
     Dates: start: 20170120, end: 20170323
  16. OMEPRAZOLE. [Concomitant]
     Active Substance: OMEPRAZOLE
     Indication: PRODUCT USED FOR UNKNOWN INDICATION
     Dosage: UNK
     Route: 065
     Dates: start: 20170615
  17. OLANZAPINA [Concomitant]
     Active Substance: OLANZAPINE
     Indication: PRODUCT USED FOR UNKNOWN INDICATION
     Dosage: UNK
     Route: 065
     Dates: start: 20170615

REACTIONS (2)
  - Influenza [Recovered/Resolved]
  - Respiratory tract infection [Recovered/Resolved]

NARRATIVE: CASE EVENT DATE: 20180121
